FAERS Safety Report 5430409-9 (Version None)
Quarter: 2007Q3

REPORT INFORMATION
  Report Type: 
  Country: None (occurrence: None)
  Receive Date: 20070828
  Receipt Date: 20070818
  Transmission Date: 20080115
  Serious: Yes (Life-Threatening, Other)
  Sender: FDA-Public Use
  Company Number: PAR_01648_2007

PATIENT
  Sex: Female
  Weight: 56 kg

DRUGS (6)
  1. MEGACE ES [Suspect]
     Indication: APPETITE DISORDER
     Dosage: (625 MG QD ORAL)
     Route: 048
     Dates: start: 20070405, end: 20070503
  2. WARFARIN SODIUM [Suspect]
     Indication: DRUG USE FOR UNKNOWN INDICATION
     Dosage: (8.5 MG QD DF ORAL)
  3. POLYCARBOPHIL CALCIUM [Concomitant]
  4. INDERAL LA [Concomitant]
  5. DOCUSATE SODIUM [Concomitant]
  6. CITRUCEL [Concomitant]

REACTIONS (3)
  - DRUG INTERACTION [None]
  - DRUG LEVEL INCREASED [None]
  - INTERNATIONAL NORMALISED RATIO INCREASED [None]
